FAERS Safety Report 5588501-4 (Version None)
Quarter: 2008Q1

REPORT INFORMATION
  Report Type: 
  Country: None (occurrence: None)
  Receive Date: 20080111
  Receipt Date: 20080107
  Transmission Date: 20080703
  Serious: Yes (Life-Threatening)
  Sender: FDA-Public Use
  Company Number: GB-ASTRAZENECA-2007GB02607

PATIENT
  Age: 48 Year
  Sex: Female

DRUGS (5)
  1. LIDOCAINE [Suspect]
     Indication: ALLERGY TEST
     Dosage: USED FOR ALLERGY TEST
     Route: 065
     Dates: start: 20071002
  2. LIDOCAINE [Suspect]
     Dosage: 1 CM2 APPLIED TO A PATCH
     Route: 061
     Dates: start: 20071002
  3. VERSATIS [Suspect]
     Route: 061
  4. ALBUTEROL [Concomitant]
     Indication: ASTHMA
  5. TRAMADOL HCL [Concomitant]

REACTIONS (5)
  - ANGIOEDEMA [None]
  - ASTHMA [None]
  - OEDEMA PERIPHERAL [None]
  - SYNCOPE [None]
  - URTICARIA [None]
